FAERS Safety Report 5151553-X (Version None)
Quarter: 2006Q4

REPORT INFORMATION
  Report Type: 
  Country: None (occurrence: None)
  Receive Date: 20061115
  Receipt Date: 20061102
  Transmission Date: 20070319
  Serious: Yes (Hospitalization)
  Sender: FDA-Public Use
  Company Number: US-ELI_LILLY_AND_COMPANY-US200611000662

PATIENT
  Sex: Male

DRUGS (5)
  1. FORTEO [Suspect]
     Indication: OSTEOPOROSIS
  2. CALCIUM [Concomitant]
  3. VITAMIN D [Concomitant]
  4. INSULIN [Concomitant]
  5. GLYBURIDE [Concomitant]

REACTIONS (1)
  - BACK PAIN [None]
